FAERS Safety Report 4881390-2 (Version None)
Quarter: 2005Q4

REPORT INFORMATION
  Report Type: 
  Country: None (occurrence: None)
  Receive Date: 20051201
  Receipt Date: 20050729
  Transmission Date: 20060501
  Serious: No
  Sender: FDA-Public Use
  Company Number: 2005PV000684

PATIENT
  Age: 68 Year
  Sex: Female
  Weight: 104.3273 kg

DRUGS (9)
  1. BYETTA [Suspect]
     Indication: DIABETES MELLITUS NON-INSULIN-DEPENDENT
     Dosage: 5 MCG; BID; SC
     Route: 058
     Dates: start: 20050718
  2. HUMALOG MIX 75/25 [Concomitant]
  3. VERAPAMIL [Concomitant]
  4. ZAROXOLYN [Concomitant]
  5. PRILOSEC [Concomitant]
  6. MICARDIS [Concomitant]
  7. KLOR-CON [Concomitant]
  8. XANAX [Concomitant]
  9. KETOPROFEN [Concomitant]

REACTIONS (5)
  - BLOOD GLUCOSE DECREASED [None]
  - FATIGUE [None]
  - HEADACHE [None]
  - SOMNOLENCE [None]
  - WEIGHT DECREASED [None]
